FAERS Safety Report 7495084 (Version 24)
Quarter: 2012Q4

REPORT INFORMATION
  Report Type: Report from Study
  Country: GB (occurrence: GB)
  Receive Date: 20100722
  Receipt Date: 20121012
  Transmission Date: 20130627
  Serious: Yes (Death, Life-Threatening, Hospitalization)
  Sender: FDA-Public Use
  Company Number: GB-ROCHE-712081

PATIENT
  Age: 46 Year
  Sex: Female
  Weight: 59 kg

DRUGS (16)
  1. BEVACIZUMAB [Suspect]
     Indication: BREAST CANCER
     Dosage: DOSE LEVEL: 15 MG/KG, FORM: VIAL, LAST DOSE RECEIVED PRIOR TO SAE ON 09 JULY 2010
     Route: 042
     Dates: start: 20100618, end: 20100718
  2. TRASTUZUMAB [Suspect]
     Indication: BREAST CANCER
     Dosage: LOADING DOSE, TOTAL DOSE: 472.5 MG, FORM: VIAL, LAST DOSE PRIOR TO SAE: 17 JUN 2010
     Route: 042
  3. TRASTUZUMAB [Suspect]
     Dosage: DOSE LEVEL: 6 MG/KG, LAST DOSE PRIOR TO SAE WAS 09 JULY 2010
     Route: 042
  4. DOCETAXEL [Suspect]
     Indication: BREAST CANCER
     Dosage: DOSE LEVEL: 75 MG/M2, FORM VIAL, LAST DOSE PRIOR TO SAE: 09 JULY 2010.
     Route: 042
     Dates: start: 20100618, end: 20100718
  5. CARBOPLATIN [Suspect]
     Indication: BREAST CANCER
     Dosage: DOSE LEVEL: 6 AUC, FORM: VIAL, LAST DOSE PRIOR TO SAE ON 09 JULY 2010.
     Route: 042
     Dates: start: 20100618, end: 20100718
  6. METOCLOPRAMIDE [Concomitant]
     Indication: NAUSEA
     Dosage: FREQUENCY: PRN.
     Route: 048
     Dates: start: 20100618, end: 20100716
  7. FLUCONAZOLE [Concomitant]
     Dosage: INDICATION: OVAL THRASH.
     Route: 048
     Dates: start: 20100709, end: 20100716
  8. FLUCONAZOLE [Concomitant]
     Dosage: DOSE UNKNOWN
     Route: 048
     Dates: start: 20100716, end: 20100726
  9. MEROPENEM [Concomitant]
     Dosage: DOSE UNKNOWN
     Route: 065
     Dates: start: 20100716, end: 20100726
  10. METRONIDAZOLE [Concomitant]
     Dosage: DOSE UNKNOWN
     Route: 065
     Dates: start: 20100716, end: 20100719
  11. VANCOMYCIN [Concomitant]
     Dosage: DOSE UNKNOWN
     Route: 065
     Dates: start: 20100716, end: 20100718
  12. LOPERAMIDE [Concomitant]
     Indication: DIARRHOEA
     Dosage: DOSE: 1-2.  FREQUENCY: PRN
     Route: 048
     Dates: start: 20100715, end: 20100716
  13. DEXAMETHASONE [Concomitant]
     Dosage: INDICATION: 3 DAYS POST CHEMOTHERAPY.
     Route: 048
     Dates: start: 20100618, end: 20100716
  14. APREPITANT [Concomitant]
     Dosage: INDICATION: PRE-CHEMOTHERAPY FOR NAUSEA. FREQUENCY: 1 HOUR PRE-CHEMOTHERAPY.
     Route: 048
     Dates: start: 20100709, end: 20100709
  15. APREPITANT [Concomitant]
     Dosage: FREQUENCY: DAY 2+3 OF CHEMOTHERAPY.
     Route: 048
     Dates: start: 20100710, end: 20100711
  16. FILGRASTIM [Concomitant]
     Dosage: INDICATION: PREVIOUS NEUTROPENIA
     Route: 058
     Dates: start: 20100713, end: 20100716

REACTIONS (9)
  - Pleural effusion [Fatal]
  - Intestinal ischaemia [Recovered/Resolved]
  - Diarrhoea [Recovered/Resolved]
  - Abdominal pain [Recovered/Resolved]
  - Peritonitis [Not Recovered/Not Resolved]
  - Endotracheal intubation [Not Recovered/Not Resolved]
  - Disseminated intravascular coagulation [Recovered/Resolved]
  - Abdominal sepsis [Recovered/Resolved]
  - Febrile neutropenia [Recovered/Resolved]
